FAERS Safety Report 25568840 (Version 1)
Quarter: 2025Q3

REPORT INFORMATION
  Report Type: Report from Study
  Country: US (occurrence: US)
  Receive Date: 20250716
  Receipt Date: 20250716
  Transmission Date: 20251020
  Serious: Yes (Hospitalization)
  Sender: ALNYLAM PHARMACEUTICALS
  Company Number: US-ALNYLAM PHARMACEUTICALS, INC.-ALN-2025-004356

PATIENT

DRUGS (1)
  1. GIVLAARI [Suspect]
     Active Substance: GIVOSIRAN SODIUM
     Indication: Porphyria
     Route: 065
     Dates: start: 20211221, end: 20211221

REACTIONS (6)
  - Condition aggravated [Unknown]
  - Fatigue [Unknown]
  - Mobility decreased [Unknown]
  - Pyrexia [Unknown]
  - Sluggishness [Unknown]
  - Nausea [Unknown]
